FAERS Safety Report 7877696-5 (Version None)
Quarter: 2011Q4

REPORT INFORMATION
  Report Type: 
  Country: None (occurrence: None)
  Receive Date: 20111031
  Receipt Date: 20111031
  Transmission Date: 20120403
  Serious: No
  Sender: FDA-Public Use
  Company Number: None

PATIENT
  Sex: Male

DRUGS (1)
  1. CIMZIA [Suspect]
     Indication: RHEUMATOID ARTHRITIS
     Dosage: 400MG
     Route: 058

REACTIONS (3)
  - SECRETION DISCHARGE [None]
  - RASH MACULAR [None]
  - RASH ERYTHEMATOUS [None]
